FAERS Safety Report 5893496-X (Version None)
Quarter: 2008Q3

REPORT INFORMATION
  Report Type: 
  Country: None (occurrence: None)
  Receive Date: 20080919
  Receipt Date: 20080903
  Transmission Date: 20090109
  Serious: Yes (Death, Hospitalization)
  Sender: FDA-Public Use
  Company Number: 2008BI014309

PATIENT
  Age: 31 Year
  Sex: Female

DRUGS (16)
  1. TYSABRI [Suspect]
     Indication: RELAPSING-REMITTING MULTIPLE SCLEROSIS
     Dosage: 300 MG; QM; IV
     Route: 042
     Dates: start: 20071102, end: 20080204
  2. KALIUM [Concomitant]
  3. BACLOFEN [Concomitant]
  4. PANTOZOL [Concomitant]
  5. OXYBUTIN [Concomitant]
  6. TRIMIPRAMINE MALEATE [Concomitant]
  7. COTRIMAXAZOL [Concomitant]
  8. CORTISONE [Concomitant]
  9. REBIF [Concomitant]
  10. .. [Concomitant]
  11. COPAXONE [Concomitant]
  12. MITOXANTRONE [Concomitant]
  13. .. [Concomitant]
  14. .. [Concomitant]
  15. METHYLPREDNISOLONE [Concomitant]
  16. SANDOGLOBULIN [Concomitant]

REACTIONS (14)
  - ACUTE RESPIRATORY DISTRESS SYNDROME [None]
  - BLOOD PRESSURE ABNORMAL [None]
  - BRAIN STEM SYNDROME [None]
  - DYSPHAGIA [None]
  - DYSPNOEA [None]
  - HYPOTHERMIA [None]
  - INAPPROPRIATE ANTIDIURETIC HORMONE SECRETION [None]
  - MULTIPLE SCLEROSIS RELAPSE [None]
  - NAUSEA [None]
  - PARAPLEGIA [None]
  - PSYCHOTIC DISORDER [None]
  - RESPIRATORY FAILURE [None]
  - URINARY TRACT INFECTION [None]
  - VERTIGO [None]
